FAERS Safety Report 9351416 (Version 1)
Quarter: 2013Q2

REPORT INFORMATION
  Report Type: Spontaneous
  Country: US (occurrence: US)
  Receive Date: 20130617
  Receipt Date: 20130617
  Transmission Date: 20140414
  Serious: No
  Sender: FDA-Public Use
  Company Number: US-UPSHER-SMITH LABORATORIES, INC.-13001796

PATIENT
  Age: 63 Year
  Sex: Male

DRUGS (8)
  1. JANTOVEN [Suspect]
     Indication: CORONARY ARTERY OCCLUSION
     Dosage: 5 MG, QD
     Route: 048
     Dates: start: 201302
  2. FISH OIL [Concomitant]
     Dosage: UNK
  3. XANAX [Concomitant]
     Dosage: UNK
  4. PRAVASTATIN [Concomitant]
     Dosage: UNK
  5. CARVEDILOL [Concomitant]
     Dosage: UNK
  6. LISINOPRIL [Concomitant]
     Dosage: UNK
  7. LASIX                              /00032601/ [Concomitant]
     Dosage: UNK
  8. MULTIVITAMIN                       /01229101/ [Concomitant]
     Dosage: UNK

REACTIONS (2)
  - International normalised ratio abnormal [Unknown]
  - Fatigue [Not Recovered/Not Resolved]
